FAERS Safety Report 5741803-0 (Version None)
Quarter: 2008Q2

REPORT INFORMATION
  Report Type: 
  Country: None (occurrence: None)
  Receive Date: 20080515
  Receipt Date: 20080515
  Transmission Date: 20081010
  Serious: Yes (Hospitalization)
  Sender: FDA-Public Use
  Company Number: None

PATIENT
  Age: 50 Year
  Sex: Male

DRUGS (2)
  1. HYZAAR [Suspect]
     Indication: HYPERTENSION
     Dosage: ORAL; 50.0 MILLIGRAM
     Route: 048
     Dates: start: 20080217, end: 20080218
  2. RAMIPRIL [Suspect]
     Dosage: ORAL;10.0 MILLIGRAM
     Dates: start: 20041110, end: 20080204

REACTIONS (4)
  - ANGIOEDEMA [None]
  - IMPAIRED HEALING [None]
  - LEUKOCYTOCLASTIC VASCULITIS [None]
  - RASH PRURITIC [None]
